FAERS Safety Report 5422997-3 (Version None)
Quarter: 2007Q3

REPORT INFORMATION
  Report Type: 
  Country: None (occurrence: None)
  Receive Date: 20070820
  Receipt Date: 20070803
  Transmission Date: 20080115
  Serious: Yes (Life-Threatening, Hospitalization)
  Sender: FDA-Public Use
  Company Number: 2007001435

PATIENT
  Age: 77 Year
  Sex: Male

DRUGS (1)
  1. TARCEVA [Suspect]
     Indication: RESPIRATORY TRACT NEOPLASM
     Dosage: 150 MG (QD), ORAL
     Route: 048
     Dates: start: 20060531, end: 20060710

REACTIONS (3)
  - DIARRHOEA [None]
  - HYPOKALAEMIA [None]
  - RENAL FAILURE ACUTE [None]
